FAERS Safety Report 25943677 (Version 1)
Quarter: 2025Q4

REPORT INFORMATION
  Report Type: Spontaneous
  Country: US (occurrence: US)
  Receive Date: 20251021
  Receipt Date: 20251021
  Transmission Date: 20260119
  Serious: No
  Sender: SOLENO THERAPEUTICS
  Company Number: US-SOLENO THERAPEUTICS, INC.-SOL2025000310

PATIENT
  Age: 5 Year
  Sex: Male
  Weight: 34.47 kg

DRUGS (2)
  1. VYKAT XR [Suspect]
     Active Substance: DIAZOXIDE CHOLINE
     Indication: Prader-Willi syndrome
     Dosage: 75 MILLIGRAM, QD
     Route: 048
  2. VYKAT XR [Suspect]
     Active Substance: DIAZOXIDE CHOLINE
     Dosage: 150 MILLIGRAM, QD
     Route: 048

REACTIONS (8)
  - Blood glucose increased [Unknown]
  - Breath sounds abnormal [Unknown]
  - Yawning [Unknown]
  - Somnolence [Unknown]
  - Heart rate decreased [Unknown]
  - Oxygen saturation decreased [Unknown]
  - Flatulence [Unknown]
  - Hunger [None]

NARRATIVE: CASE EVENT DATE: 20250803
